FAERS Safety Report 6466291-0 (Version None)
Quarter: 2009Q4

REPORT INFORMATION
  Report Type: 
  Country: None (occurrence: None)
  Receive Date: 20091202
  Receipt Date: 20091124
  Transmission Date: 20100525
  Serious: Yes (Other)
  Sender: FDA-Public Use
  Company Number: PHHY2009IT52154

PATIENT
  Sex: Male

DRUGS (7)
  1. ZOMETA [Suspect]
     Indication: METASTASES TO BONE
     Dosage: 4 MG, QMO
     Route: 042
     Dates: start: 20050301, end: 20090602
  2. DELTACORTENE [Concomitant]
     Indication: OEDEMA PERIPHERAL
     Dosage: 5 MG, UNK
  3. DIBASE [Concomitant]
     Dosage: 30 DROPS
     Route: 048
  4. LASIX [Concomitant]
     Dosage: 25 MG, UNK
  5. ANTRA [Concomitant]
     Dosage: 20 MG, UNK
     Route: 048
  6. SELEPARINA [Concomitant]
     Dosage: 2850 IU, UNK
  7. CALCIUM SANDOZ [Concomitant]
     Dosage: 500 MG, UNK
     Route: 048

REACTIONS (3)
  - BONE OPERATION [None]
  - OSTEONECROSIS [None]
  - TOOTH EXTRACTION [None]
